FAERS Safety Report 5080810-0 (Version None)
Quarter: 2006Q3

REPORT INFORMATION
  Report Type: 
  Country: None (occurrence: None)
  Receive Date: 20060811
  Receipt Date: 20060728
  Transmission Date: 20061208
  Serious: Yes (Other)
  Sender: FDA-Public Use
  Company Number: 2006092407

PATIENT
  Sex: Female

DRUGS (2)
  1. SINUTAB MSWD W/ PE CAPLET (ACETAMINOPHEN, PHENYLEPHRINE HYDROCHLORIDE) [Suspect]
     Indication: SINUSITIS
     Dosage: 2 TABLETS TWICE DAILY, ORAL
     Route: 048
     Dates: start: 20060725, end: 20060728
  2. AZITHROMYCIN [Concomitant]

REACTIONS (3)
  - ASTHENIA [None]
  - PARAESTHESIA [None]
  - SENSATION OF HEAVINESS [None]
